FAERS Safety Report 4622328-2 (Version None)
Quarter: 2005Q1

REPORT INFORMATION
  Report Type: 
  Country: None (occurrence: None)
  Receive Date: 20050328
  Receipt Date: 20050315
  Transmission Date: 20050727
  Serious: Yes (Other)
  Sender: FDA-Public Use
  Company Number: 2005045203

PATIENT
  Sex: Male

DRUGS (1)
  1. COMBACTAM (SULBACTAM) [Suspect]
     Indication: ILL-DEFINED DISORDER
     Dosage: 1.5 GRAM (0.5 GRAM, 3 IN 1 D) INTRAVENOUS
     Route: 042
     Dates: start: 20050309

REACTIONS (1)
  - RHABDOMYOLYSIS [None]
